FAERS Safety Report 4748943-3 (Version None)
Quarter: 2005Q3

REPORT INFORMATION
  Report Type: 
  Country: None (occurrence: None)
  Receive Date: 20050819
  Receipt Date: 20050315
  Transmission Date: 20060218
  Serious: Yes (Hospitalization, Disabling)
  Sender: FDA-Public Use
  Company Number: US-MERCK-0503USA03178

PATIENT
  Age: 32 Year
  Sex: Female
  Weight: 111 kg

DRUGS (5)
  1. VIOXX [Suspect]
     Indication: RHEUMATOID ARTHRITIS
     Route: 048
     Dates: start: 20010101, end: 20040930
  2. VIOXX [Suspect]
     Indication: INTERVERTEBRAL DISC PROTRUSION
     Route: 048
     Dates: start: 20010101, end: 20040930
  3. PERCOCET [Concomitant]
     Indication: BACK PAIN
     Route: 048
     Dates: start: 20010507, end: 20030201
  4. XANAX [Concomitant]
     Indication: PANIC ATTACK
     Route: 048
     Dates: start: 19930915
  5. AMOXICILLIN [Concomitant]
     Indication: TOOTH INFECTION
     Route: 048
     Dates: start: 20010507

REACTIONS (36)
  - AMENORRHOEA [None]
  - BACK PAIN [None]
  - BLINDNESS [None]
  - BLOOD TRIGLYCERIDES INCREASED [None]
  - BRONCHITIS [None]
  - CEREBRAL HAEMORRHAGE [None]
  - CEREBROVASCULAR ACCIDENT [None]
  - CONSTIPATION [None]
  - DEEP VEIN THROMBOSIS [None]
  - DISTURBANCE IN ATTENTION [None]
  - DIZZINESS [None]
  - DRUG ABUSER [None]
  - ECCHYMOSIS [None]
  - EPISTAXIS [None]
  - EYE HAEMORRHAGE [None]
  - HEADACHE [None]
  - HYPOAESTHESIA [None]
  - HYPOTHYROIDISM [None]
  - INFERTILITY [None]
  - LICE INFESTATION [None]
  - MIGRAINE [None]
  - MUSCLE SPASMS [None]
  - NERVE INJURY [None]
  - OEDEMA [None]
  - OSTEOARTHRITIS [None]
  - OVERDOSE [None]
  - PNEUMONIA [None]
  - PRODUCTIVE COUGH [None]
  - SINUSITIS [None]
  - SUPERIOR SAGITTAL SINUS THROMBOSIS [None]
  - THROMBOSIS [None]
  - TOOTH INFECTION [None]
  - TRANSIENT ISCHAEMIC ATTACK [None]
  - TRANSVERSE SINUS THROMBOSIS [None]
  - UTERINE DISORDER [None]
  - WEIGHT INCREASED [None]
